FAERS Safety Report 5776873-7 (Version None)
Quarter: 2008Q2

REPORT INFORMATION
  Report Type: 
  Country: None (occurrence: None)
  Receive Date: 20080601
  Receipt Date: 20080117
  Transmission Date: 20081010
  Serious: No
  Sender: FDA-Public Use
  Company Number: US200801003957

PATIENT
  Age: 67 Year
  Sex: Female
  Weight: 91.2 kg

DRUGS (3)
  1. BYETTA [Suspect]
     Indication: TYPE 2 DIABETES MELLITUS
     Dosage: 10 UG, EACH MORNING, SUBCUTANEOUS; 10 UG, EACH MORNING, SUBCUTANEOUS
     Route: 058
     Dates: start: 20060101, end: 20071127
  2. BYETTA [Suspect]
     Indication: TYPE 2 DIABETES MELLITUS
     Dosage: 10 UG, EACH MORNING, SUBCUTANEOUS; 10 UG, EACH MORNING, SUBCUTANEOUS
     Route: 058
     Dates: start: 20080110, end: 20080112
  3. HUMULIN 30/70 (INSULIN HUMAN INJECTION, ISOPHANE) [Concomitant]

REACTIONS (10)
  - BLOOD GLUCOSE INCREASED [None]
  - INCISION SITE COMPLICATION [None]
  - INCISION SITE OEDEMA [None]
  - INCISION SITE PAIN [None]
  - INCISIONAL DRAINAGE [None]
  - NAUSEA [None]
  - UMBILICAL HERNIA [None]
  - VOMITING [None]
  - WEIGHT DECREASED [None]
  - WEIGHT INCREASED [None]
